FAERS Safety Report 8372381-8 (Version None)
Quarter: 2012Q2

REPORT INFORMATION
  Report Type: 
  Country: None (occurrence: None)
  Receive Date: 20120521
  Receipt Date: 20120507
  Transmission Date: 20120825
  Serious: Yes (Death, Other)
  Sender: FDA-Public Use
  Company Number: TR-RANBAXY-2012RR-53621

PATIENT
  Age: 10 Year
  Sex: Male

DRUGS (4)
  1. RISPERIDONE [Suspect]
     Indication: AGITATION
     Dosage: 1 MG/DAY (0.03 MG/KG)
     Route: 065
  2. RISPERIDONE [Suspect]
     Dosage: 0.25 MG/DAY
     Route: 065
  3. RISPERIDONE [Suspect]
     Dosage: 0.5 MG/DAY
     Route: 065
  4. OLANZAPINE [Concomitant]
     Indication: AGITATION
     Dosage: 5 MG/DAY
     Route: 065

REACTIONS (3)
  - FAECAL INCONTINENCE [None]
  - URINARY INCONTINENCE [None]
  - DEFAECATION URGENCY [None]
